FAERS Safety Report 7057779-2 (Version None)
Quarter: 2010Q4

REPORT INFORMATION
  Report Type: 
  Country: None (occurrence: None)
  Receive Date: 20101022
  Receipt Date: 20101012
  Transmission Date: 20110411
  Serious: Yes (Hospitalization)
  Sender: FDA-Public Use
  Company Number: JP-PFIZER INC-2010115487

PATIENT
  Age: 29 Year
  Sex: Male

DRUGS (3)
  1. SALAZOPYRIN [Suspect]
     Dosage: 1000 MG, 3X/DAY
     Route: 065
     Dates: start: 20100820, end: 20100904
  2. PENTASA ^KYORIN^ [Suspect]
     Indication: COLITIS ULCERATIVE
     Dosage: 500 MG, 3X/DAY
     Route: 048
     Dates: start: 20100804, end: 20100819
  3. STERONEMA [Concomitant]
     Indication: COLITIS ULCERATIVE
     Dosage: 3 MG, 1X/DAY
     Route: 054
     Dates: start: 20100820, end: 20100904

REACTIONS (3)
  - LIVER DISORDER [None]
  - OCULAR HYPERAEMIA [None]
  - RASH [None]
